FAERS Safety Report 12862357 (Version 1)
Quarter: 2016Q4

REPORT INFORMATION
  Report Type: Spontaneous
  Country: US (occurrence: US)
  Receive Date: 20161018
  Receipt Date: 20161018
  Transmission Date: 20170207
  Serious: No
  Sender: FDA-Public Use
  Company Number: None

PATIENT
  Age: 60 Year
  Sex: Female
  Weight: 48.6 kg

DRUGS (9)
  1. AMBIEN [Concomitant]
     Active Substance: ZOLPIDEM TARTRATE
  2. KLONOPIN [Concomitant]
     Active Substance: CLONAZEPAM
  3. ZOHYDROCODONE ER [Concomitant]
  4. ARMODAFINIL. [Suspect]
     Active Substance: ARMODAFINIL
     Indication: SOMNOLENCE
     Dosage: QUANTITY:1 TABLET(S); ORAL?
     Route: 048
     Dates: start: 20161018
  5. GABAPENTIN. [Concomitant]
     Active Substance: GABAPENTIN
  6. CENTRUM SILVER [Concomitant]
     Active Substance: MINERALS\VITAMINS
  7. LEXAPRO [Concomitant]
     Active Substance: ESCITALOPRAM OXALATE
  8. XIFAXAN [Concomitant]
     Active Substance: RIFAXIMIN
  9. CALTRATE [Concomitant]
     Active Substance: CALCIUM CARBONATE

REACTIONS (4)
  - Throat irritation [None]
  - Product taste abnormal [None]
  - Product substitution issue [None]
  - Dysgeusia [None]

NARRATIVE: CASE EVENT DATE: 20161018
